FAERS Safety Report 18020850 (Version 1)
Quarter: 2020Q3

REPORT INFORMATION
  Report Type: Other
  Country: CN (occurrence: CN)
  Receive Date: 20200714
  Receipt Date: 20200714
  Transmission Date: 20201103
  Serious: Yes (Death, Hospitalization)
  Sender: FDA-Public Use
  Company Number: CN-ROCHE-2640612

PATIENT
  Age: 55 Year
  Sex: Male

DRUGS (1)
  1. ACTILYSE [Suspect]
     Active Substance: ALTEPLASE
     Indication: ISCHAEMIC STROKE
     Dosage: 0.6 MG/KG
     Route: 042
     Dates: start: 20190305

REACTIONS (9)
  - Death [Fatal]
  - Cerebral haemorrhage [Recovered/Resolved]
  - Cerebral infarction [Recovering/Resolving]
  - Oral disorder [Unknown]
  - Incontinence [Unknown]
  - Thrombophlebitis migrans [Unknown]
  - Gastric cancer [Unknown]
  - Cerebellar ischaemia [Recovered/Resolved]
  - Haemorrhagic cerebral infarction [Recovering/Resolving]

NARRATIVE: CASE EVENT DATE: 20190307
